FAERS Safety Report 5399800-3 (Version None)
Quarter: 2007Q3

REPORT INFORMATION
  Report Type: 
  Country: None (occurrence: None)
  Receive Date: 20070730
  Receipt Date: 20070718
  Transmission Date: 20080115
  Serious: Yes (Hospitalization)
  Sender: FDA-Public Use
  Company Number: NL-JNJFOC-20050105107

PATIENT
  Sex: Male
  Weight: 80 kg

DRUGS (6)
  1. BLINDED; INFLIXIMAB, RECOMBINANT [Suspect]
     Indication: RHEUMATOID ARTHRITIS
     Dosage: STUDY DRUG NOT ADMINISTERED.
  2. METHOTREXATE [Concomitant]
  3. FOLIC ACID [Concomitant]
  4. RANITIDINE [Concomitant]
  5. FOSAMAX [Concomitant]
     Indication: OSTEOPENIA
  6. NAPROXEN [Concomitant]
     Indication: ARTHRALGIA

REACTIONS (3)
  - MALAISE [None]
  - NON-SMALL CELL LUNG CANCER [None]
  - WEIGHT DECREASED [None]
